FAERS Safety Report 9660041 (Version 1)
Quarter: 2013Q4

REPORT INFORMATION
  Report Type: Spontaneous
  Country: US (occurrence: US)
  Receive Date: 20131031
  Receipt Date: 20131031
  Transmission Date: 20140711
  Serious: Yes (Other)
  Sender: FDA-Public Use
  Company Number: US-ABBVIE-13P-163-1134872-00

PATIENT
  Sex: Male

DRUGS (2)
  1. CLARITHROMYCIN 500 MG [Suspect]
     Indication: UPPER RESPIRATORY TRACT INFECTION
     Route: 048
     Dates: start: 20130811, end: 20130812
  2. DIVALPROEX [Suspect]
     Indication: CONVULSION
     Route: 048

REACTIONS (1)
  - Convulsion [Unknown]
